FAERS Safety Report 5120913-5 (Version None)
Quarter: 2006Q4

REPORT INFORMATION
  Report Type: 
  Country: None (occurrence: None)
  Receive Date: 20061005
  Receipt Date: 20060926
  Transmission Date: 20070319
  Serious: Yes (Other)
  Sender: FDA-Public Use
  Company Number: US-KINGPHARMUSA00001-K200601230

PATIENT
  Age: 70 Year
  Sex: Male

DRUGS (4)
  1. ALTACE [Suspect]
     Indication: ISCHAEMIC CARDIOMYOPATHY
     Route: 048
     Dates: start: 20040101
  2. PLAVIX [Suspect]
     Indication: ISCHAEMIC CARDIOMYOPATHY
     Route: 048
     Dates: start: 20040101
  3. TAHOR [Concomitant]
     Indication: ISCHAEMIC CARDIOMYOPATHY
     Dates: start: 20040101, end: 20060713
  4. EZETROL [Concomitant]
     Indication: ISCHAEMIC CARDIOMYOPATHY
     Dates: start: 20040101, end: 20060713

REACTIONS (3)
  - BLOOD CREATINE PHOSPHOKINASE INCREASED [None]
  - BLOOD LACTATE DEHYDROGENASE INCREASED [None]
  - MYALGIA [None]
